FAERS Safety Report 10769504 (Version 1)
Quarter: 2015Q1

REPORT INFORMATION
  Report Type: Spontaneous
  Country: US (occurrence: US)
  Receive Date: 20150206
  Receipt Date: 20150206
  Transmission Date: 20150721
  Serious: Yes (Death, Other)
  Sender: FDA-Public Use
  Company Number: US-ASTRAZENECA-2015SE10467

PATIENT
  Sex: Female

DRUGS (1)
  1. PRILOSEC [Suspect]
     Active Substance: OMEPRAZOLE MAGNESIUM
     Route: 048

REACTIONS (5)
  - Gastrointestinal ulcer haemorrhage [Unknown]
  - Gastrointestinal ulcer perforation [Unknown]
  - Death [Fatal]
  - Oesophageal carcinoma [Unknown]
  - Gastrooesophageal reflux disease [Unknown]
